FAERS Safety Report 5593004-7 (Version None)
Quarter: 2008Q1

REPORT INFORMATION
  Report Type: 
  Country: None (occurrence: None)
  Receive Date: 20080116
  Receipt Date: 20080114
  Transmission Date: 20080703
  Serious: Yes (Hospitalization, Other)
  Sender: FDA-Public Use
  Company Number: US-JNJFOC-20071101106

PATIENT
  Sex: Female
  Weight: 68.04 kg

DRUGS (12)
  1. REMICADE [Suspect]
     Indication: CROHN'S DISEASE
     Dosage: SECOND INFUSION
     Route: 042
  2. REMICADE [Suspect]
     Indication: COLITIS ULCERATIVE
     Route: 042
  3. ASACOL [Concomitant]
     Indication: COLITIS ULCERATIVE
     Dosage: 3 PILLS
  4. PREDNISONE TAB [Concomitant]
  5. POTASSIUM CHLORIDE [Concomitant]
     Indication: EYE LASER SURGERY
  6. LASIX [Concomitant]
     Indication: FLUID RETENTION
  7. ZEGERID [Concomitant]
     Indication: COLITIS ULCERATIVE
  8. PULMICORT [Concomitant]
  9. CLONIDINE [Concomitant]
  10. ALINIA [Concomitant]
  11. IRON [Concomitant]
  12. MAGNESIUM [Concomitant]
     Indication: ELECTROLYTE IMBALANCE

REACTIONS (4)
  - ABDOMINAL DISTENSION [None]
  - ARTHRALGIA [None]
  - ASTHENIA [None]
  - INFUSION RELATED REACTION [None]
